FAERS Safety Report 6793351-7 (Version None)
Quarter: 2010Q2

REPORT INFORMATION
  Report Type: 
  Country: None (occurrence: None)
  Receive Date: 20100624
  Receipt Date: 20100310
  Transmission Date: 20101027
  Serious: Yes (Other)
  Sender: FDA-Public Use
  Company Number: US-MYLANLABS-2009S1021621

PATIENT
  Age: 71 Year
  Sex: Female
  Weight: 61.69 kg

DRUGS (5)
  1. CLOZAPINE [Suspect]
     Indication: SCHIZOPHRENIA, PARANOID TYPE
     Route: 048
     Dates: start: 20090301, end: 20100202
  2. HALOPERIDOL [Concomitant]
  3. TEGRETOL [Concomitant]
     Dates: start: 20100122
  4. MIRAPEX [Concomitant]
     Dates: start: 20100122
  5. TRAZODONE HYDROCHLORIDE [Concomitant]
     Dates: start: 20100122

REACTIONS (2)
  - GRANULOCYTOPENIA [None]
  - LEUKOPENIA [None]
